FAERS Safety Report 4506071-6 (Version None)
Quarter: 2004Q4

REPORT INFORMATION
  Report Type: 
  Country: None (occurrence: None)
  Receive Date: 20041025
  Receipt Date: 20040507
  Transmission Date: 20050328
  Serious: Yes (Hospitalization)
  Sender: FDA-Public Use
  Company Number: US-JNJFOC-20040501856

PATIENT
  Age: 51 Year
  Sex: Female

DRUGS (11)
  1. INFLIXIMAB (INFLIXIMAB, RECOMBINANT) LYOPHILIZED POWDER [Suspect]
     Indication: RHEUMATOID ARTHRITIS
     Dosage: INTRAVENOUS
     Route: 042
     Dates: start: 20010827
  2. PLAQUENIL [Concomitant]
  3. PREDNISONE [Concomitant]
  4. BENICAR [Concomitant]
  5. METHOTREXATE [Concomitant]
  6. PROZAC [Concomitant]
  7. CELEBREX [Concomitant]
  8. LASIX [Concomitant]
  9. VITAMIN B6 (PYRIXODINE HYDROCHLORIDE) [Concomitant]
  10. VITAMIN E [Concomitant]
  11. MULTIVITAMIN (MULTIVITAMINS) [Concomitant]

REACTIONS (1)
  - MYOCARDIAL INFARCTION [None]
